FAERS Safety Report 6880835-6 (Version None)
Quarter: 2010Q3

REPORT INFORMATION
  Report Type: 
  Country: None (occurrence: None)
  Receive Date: 20100728
  Receipt Date: 20100721
  Transmission Date: 20110219
  Serious: Yes (Disabling)
  Sender: FDA-Public Use
  Company Number: JP-ELI_LILLY_AND_COMPANY-JP201005002342

PATIENT
  Age: 59 Year
  Sex: Female
  Weight: 64 kg

DRUGS (9)
  1. GEMZAR [Suspect]
     Indication: PANCREATIC CARCINOMA STAGE IV
     Dosage: 1600 MG, OTHER
     Route: 042
     Dates: start: 20090819, end: 20091224
  2. TAKEPRON [Concomitant]
     Dosage: 15 MG, EACH MORNING
     Route: 048
     Dates: start: 20090830
  3. HYPEN [Concomitant]
     Dosage: 200 MG, 2/D
     Route: 048
     Dates: start: 20090830
  4. GASMOTIN [Concomitant]
     Dosage: 5 MG, 3/D
     Route: 048
     Dates: start: 20090825
  5. SEVEN EP [Concomitant]
     Dosage: 1 D/F, 3/D
     Route: 048
     Dates: start: 20090825
  6. BASEN [Concomitant]
     Dosage: 0.3 MG, 3/D
     Route: 048
     Dates: start: 20090827
  7. GRANISETRON HCL [Concomitant]
     Dosage: 3 MG, OTHER
     Route: 042
     Dates: start: 20090819, end: 20091224
  8. MYSLEE [Concomitant]
     Dosage: 10 MG, DAILY (1/D)
     Route: 048
     Dates: start: 20090823
  9. LENDORMIN [Concomitant]
     Dosage: 0.25 MG, DAILY (1/D)
     Route: 048

REACTIONS (8)
  - AXONAL NEUROPATHY [None]
  - CHEST DISCOMFORT [None]
  - COLD SWEAT [None]
  - DIZZINESS [None]
  - DYSPNOEA [None]
  - HEADACHE [None]
  - NAUSEA [None]
  - PALPITATIONS [None]
